FAERS Safety Report 9883615 (Version 2)
Quarter: 2014Q1

REPORT INFORMATION
  Report Type: Spontaneous
  Country: NL (occurrence: NL)
  Receive Date: 20140210
  Receipt Date: 20140213
  Transmission Date: 20141002
  Serious: Yes (Other)
  Sender: FDA-Public Use
  Company Number: NL-ROCHE-1340926

PATIENT
  Sex: Male

DRUGS (1)
  1. RITUXIMAB [Suspect]
     Indication: PRODUCT USED FOR UNKNOWN INDICATION
     Route: 064

REACTIONS (5)
  - Hypogammaglobulinaemia [Recovered/Resolved]
  - B-lymphocyte count decreased [Recovered/Resolved]
  - Foetal exposure during pregnancy [Unknown]
  - White blood cell count decreased [Unknown]
  - Neutropenia [Recovered/Resolved]
